FAERS Safety Report 23452263 (Version 2)
Quarter: 2024Q1

REPORT INFORMATION
  Report Type: Spontaneous
  Country: US (occurrence: US)
  Receive Date: 20240129
  Receipt Date: 20240209
  Transmission Date: 20240410
  Serious: Yes (Other)
  Sender: FDA-Public Use
  Company Number: US-002147023-NVSC2024US017883

PATIENT
  Sex: Female

DRUGS (1)
  1. PIQRAY [Suspect]
     Active Substance: ALPELISIB
     Indication: Breast cancer metastatic
     Dosage: UNK UNK, QD
     Route: 048

REACTIONS (4)
  - Diabetes mellitus [Recovering/Resolving]
  - Malignant neoplasm progression [Recovering/Resolving]
  - Breast cancer metastatic [Recovering/Resolving]
  - Off label use [Unknown]
